FAERS Safety Report 12457584 (Version 2)
Quarter: 2016Q2

REPORT INFORMATION
  Report Type: Spontaneous
  Country: IL (occurrence: IL)
  Receive Date: 20160610
  Receipt Date: 20160617
  Transmission Date: 20160815
  Serious: Yes (Death)
  Sender: FDA-Public Use
  Company Number: IL-ASTRAZENECA-2016SE61050

PATIENT
  Age: 40 Year
  Sex: Female

DRUGS (7)
  1. BRILINTA [Suspect]
     Active Substance: TICAGRELOR
     Indication: ACUTE MYOCARDIAL INFARCTION
     Route: 048
  2. WARFARIN [Concomitant]
     Active Substance: WARFARIN
  3. ACE INHIBITORS [Concomitant]
     Active Substance: UNSPECIFIED INGREDIENT
  4. ASPIRIN. [Concomitant]
     Active Substance: ASPIRIN
  5. BETA BLOKERS [Concomitant]
  6. CLEXAN [Concomitant]
     Dosage: AS REQUIRED
  7. ALDACTON [Concomitant]

REACTIONS (3)
  - Cerebral haemorrhage [Fatal]
  - Arrhythmia [Unknown]
  - Cerebrovascular accident [Fatal]

NARRATIVE: CASE EVENT DATE: 201601
